FAERS Safety Report 21467022 (Version 3)
Quarter: 2024Q3

REPORT INFORMATION
  Report Type: Report from Study
  Country: US (occurrence: US)
  Receive Date: 20221017
  Receipt Date: 20240716
  Transmission Date: 20241016
  Serious: No
  Sender: ABBVIE
  Company Number: US-ABBVIE-4145135

PATIENT
  Age: 76 Year
  Sex: Male

DRUGS (7)
  1. IMBRUVICA [Suspect]
     Active Substance: IBRUTINIB
     Indication: Waldenstrom^s macroglobulinaemia
     Route: 048
  2. IMBRUVICA [Suspect]
     Active Substance: IBRUTINIB
     Indication: Waldenstrom^s macroglobulinaemia
     Route: 048
  3. IMBRUVICA [Suspect]
     Active Substance: IBRUTINIB
     Indication: Waldenstrom^s macroglobulinaemia
     Route: 048
     Dates: start: 20201107
  4. MODERNA COVID-19 VACCINE [Concomitant]
     Active Substance: ELASOMERAN
     Indication: COVID-19 immunisation
     Dosage: FREQUENCY- 1-1-ONCE?FIRST DOSE
     Route: 030
     Dates: start: 20210201, end: 20210201
  5. MODERNA COVID-19 VACCINE [Concomitant]
     Active Substance: ELASOMERAN
     Indication: COVID-19 immunisation
     Dosage: FREQUENCY- 1-1-ONCE?SECOND DOSE
     Route: 030
     Dates: start: 20210301, end: 20210301
  6. MODERNA COVID-19 VACCINE [Concomitant]
     Active Substance: ELASOMERAN
     Indication: COVID-19 immunisation
     Dosage: FREQUENCY- 1-1-ONCE?THIRD DOSE/FIRST BOOSTER DOSE
     Route: 030
     Dates: start: 20220201, end: 20220201
  7. MODERNA COVID-19 VACCINE [Concomitant]
     Active Substance: ELASOMERAN
     Indication: COVID-19 immunisation
     Dosage: FREQUENCY- 1-1-ONCE?SECOND BOOSTER DOSE
     Route: 030
     Dates: start: 202206, end: 202206

REACTIONS (1)
  - Blood iron decreased [Recovering/Resolving]

NARRATIVE: CASE EVENT DATE: 20240704
